FAERS Safety Report 7677160-2 (Version None)
Quarter: 2011Q3

REPORT INFORMATION
  Report Type: 
  Country: None (occurrence: None)
  Receive Date: 20110811
  Receipt Date: 20110728
  Transmission Date: 20111222
  Serious: Yes (Death, Hospitalization, Other)
  Sender: FDA-Public Use
  Company Number: US-ELI_LILLY_AND_COMPANY-US201012005384

PATIENT
  Sex: Female

DRUGS (7)
  1. FORTEO [Suspect]
     Indication: OSTEOPOROSIS
     Dosage: 20 UG, DAILY (1/D)
     Route: 058
     Dates: start: 20091001
  2. ASPIRIN [Concomitant]
  3. DIGOXIN [Concomitant]
  4. MULTI-VITAMIN [Concomitant]
  5. LORATADINE [Concomitant]
  6. STOOL SOFTENER [Concomitant]
  7. CALCIUM CARBONATE [Concomitant]

REACTIONS (3)
  - DISORIENTATION [None]
  - PULMONARY FIBROSIS [None]
  - PNEUMOTHORAX [None]
